FAERS Safety Report 8004657-8 (Version None)
Quarter: 2011Q4

REPORT INFORMATION
  Report Type: 
  Country: None (occurrence: None)
  Receive Date: 20111223
  Receipt Date: 20111216
  Transmission Date: 20120403
  Serious: Yes (Death, Life-Threatening, Hospitalization, Disabling)
  Sender: FDA-Public Use
  Company Number: AU-CELGENEUS-008-50794-11113507

PATIENT
  Sex: Male
  Weight: 100 kg

DRUGS (5)
  1. PLATELETS [Concomitant]
     Route: 065
  2. ANTIBIOTICS [Concomitant]
     Route: 065
  3. RED BLOOD CELLS [Concomitant]
     Route: 065
  4. VIDAZA [Suspect]
     Route: 058
     Dates: start: 20111107, end: 20111111
  5. REVLIMID [Suspect]
     Dosage: 10 MILLIGRAM
     Route: 048
     Dates: start: 20111107, end: 20111121

REACTIONS (3)
  - SEPSIS [None]
  - RENAL FAILURE ACUTE [None]
  - FEBRILE NEUTROPENIA [None]
